FAERS Safety Report 9694815 (Version 1)
Quarter: 2013Q4

REPORT INFORMATION
  Report Type: Spontaneous
  Country: GB (occurrence: GB)
  Receive Date: 20131119
  Receipt Date: 20131119
  Transmission Date: 20140711
  Serious: Yes (Other)
  Sender: FDA-Public Use
  Company Number: GB-009507513-1311GBR006711

PATIENT
  Sex: 0

DRUGS (1)
  1. JANUVIA [Suspect]
     Dosage: UNK
     Route: 048

REACTIONS (2)
  - Surgery [Unknown]
  - Dysphagia [Unknown]
